FAERS Safety Report 12109883 (Version 1)
Quarter: 2016Q1

REPORT INFORMATION
  Report Type: Spontaneous
  Country: US (occurrence: US)
  Receive Date: 20160224
  Receipt Date: 20160224
  Transmission Date: 20160526
  Serious: No
  Sender: FDA-Public Use
  Company Number: US-PFIZER INC-2016081798

PATIENT
  Age: 67 Year
  Sex: Male

DRUGS (10)
  1. ALLOPURINOL. [Concomitant]
     Active Substance: ALLOPURINOL
     Dosage: 300 MG, 1X/DAY
     Route: 048
     Dates: start: 20150914
  2. LYRICA [Suspect]
     Active Substance: PREGABALIN
     Dosage: 100 MG, 2X/DAY
     Route: 048
     Dates: start: 20150914
  3. ASPIRIN. [Concomitant]
     Active Substance: ASPIRIN
     Dosage: 81 MG, 1X/DAY
     Route: 050
     Dates: start: 20150813
  4. OMEPRAZOLE. [Concomitant]
     Active Substance: OMEPRAZOLE
     Dosage: 20 MG, 1X/DAY (30 MINUTES TO 1 HOUR BEFORE A MEAL)
     Route: 048
     Dates: start: 20150813
  5. FERROUS SULFATE [Concomitant]
     Active Substance: FERROUS SULFATE\FERROUS SULFATE, DRIED
     Dosage: 325 MG (65MG IRON), 3X/DAY
     Route: 048
     Dates: start: 20150814
  6. GLIPIZIDE. [Concomitant]
     Active Substance: GLIPIZIDE
     Dosage: 5 MG, 2X/DAY (BEFORE MEALS)
     Route: 048
     Dates: start: 20150904
  7. PRAVASTATIN [Concomitant]
     Active Substance: PRAVASTATIN\PRAVASTATIN SODIUM
     Dosage: 20 MG, 1X/DAY
     Route: 048
     Dates: start: 20150904
  8. RAPAFLO [Concomitant]
     Active Substance: SILODOSIN
     Dosage: 8 MG, 1X/DAY (WITH A MEAL)
     Route: 048
     Dates: start: 20150904
  9. METOPROLOL TARTRATE. [Concomitant]
     Active Substance: METOPROLOL TARTRATE
     Dosage: 50 MG, 1X/DAY (WITH MEALS)
     Route: 048
     Dates: start: 20150914
  10. GABAPENTIN. [Concomitant]
     Active Substance: GABAPENTIN
     Dosage: 100 MG, 2X/DAY EVERY 12 HOURS
     Route: 048
     Dates: start: 20150813

REACTIONS (2)
  - Arthralgia [Unknown]
  - Back pain [Unknown]
